FAERS Safety Report 18179860 (Version 2)
Quarter: 2020Q3

REPORT INFORMATION
  Report Type: Report from Study
  Country: US (occurrence: US)
  Receive Date: 20200821
  Receipt Date: 20200825
  Transmission Date: 20201103
  Serious: Yes (Other)
  Sender: FDA-Public Use
  Company Number: US-UCBSA-2020031806

PATIENT
  Age: 0 Year
  Weight: 2.29 kg

DRUGS (16)
  1. ONFI [Suspect]
     Active Substance: CLOBAZAM
     Indication: PRODUCT USED FOR UNKNOWN INDICATION
     Dosage: UNK
     Route: 064
  2. FOLIC ACID. [Concomitant]
     Active Substance: FOLIC ACID
     Indication: PRODUCT USED FOR UNKNOWN INDICATION
     Dosage: 3 MG DAILY
     Route: 064
  3. PRENATAL [ASCORBIC ACID;CALCIUM PANTOTHENATE;CYANOCOBALAMIN;ERGOCALCIF [Concomitant]
     Indication: PRODUCT USED FOR UNKNOWN INDICATION
     Route: 064
  4. CAFFEINE. [Concomitant]
     Active Substance: CAFFEINE
     Indication: HEADACHE
     Route: 064
  5. APTIOM [Suspect]
     Active Substance: ESLICARBAZEPINE ACETATE
     Indication: PRODUCT USED FOR UNKNOWN INDICATION
     Dosage: UNK
     Route: 064
  6. PRENATAL VITAMINS [MINERALS NOS;VITAMINS NOS] [Concomitant]
     Active Substance: MINERALS\VITAMINS
     Indication: PRODUCT USED FOR UNKNOWN INDICATION
     Dosage: 1 TAB DAILY (TRINATAL RX)
     Route: 064
  7. EFFEXOR [Concomitant]
     Active Substance: VENLAFAXINE HYDROCHLORIDE
     Indication: MIGRAINE
  8. EXCEDRIN [CAFFEINE;PARACETAMOL] [Concomitant]
     Active Substance: ACETAMINOPHEN\CAFFEINE
     Indication: HEADACHE
     Route: 064
  9. VIMPAT [Suspect]
     Active Substance: LACOSAMIDE
     Indication: PRODUCT USED FOR UNKNOWN INDICATION
     Dosage: 250MG IN MORNING AND 300MG AT NIGHT
     Route: 064
  10. VIMPAT [Suspect]
     Active Substance: LACOSAMIDE
     Dosage: 300 MILLIGRAM, 2X/DAY (BID)
     Route: 064
  11. VITAMIN D [COLECALCIFEROL] [Concomitant]
     Active Substance: CHOLECALCIFEROL
     Indication: VITAMIN D DEFICIENCY
     Route: 064
  12. EFFEXOR [Concomitant]
     Active Substance: VENLAFAXINE HYDROCHLORIDE
     Indication: MAJOR DEPRESSION
     Route: 064
  13. BRIVARACETAM [Suspect]
     Active Substance: BRIVARACETAM
     Indication: PARTIAL SEIZURES
     Dosage: 100 MILLIGRAM, 2X/DAY (BID)
     Route: 064
     Dates: start: 2019, end: 20200203
  14. FLUOXETINE [Concomitant]
     Active Substance: FLUOXETINE HYDROCHLORIDE
     Indication: PRODUCT USED FOR UNKNOWN INDICATION
     Dosage: 40 MG DAILY
     Route: 064
  15. EFFEXOR [Concomitant]
     Active Substance: VENLAFAXINE HYDROCHLORIDE
     Indication: AFFECTIVE DISORDER
  16. PROZAC [Concomitant]
     Active Substance: FLUOXETINE HYDROCHLORIDE
     Indication: MAJOR DEPRESSION
     Route: 064

REACTIONS (4)
  - Premature baby [Unknown]
  - Low birth weight baby [Unknown]
  - Maternal exposure before pregnancy [Unknown]
  - Maternal exposure during pregnancy [Unknown]

NARRATIVE: CASE EVENT DATE: 2019
